FAERS Safety Report 4691354-X (Version None)
Quarter: 2005Q2

REPORT INFORMATION
  Report Type: 
  Country: None (occurrence: None)
  Receive Date: 20050615
  Receipt Date: 20050218
  Transmission Date: 20051028
  Serious: Yes (Life-Threatening, Hospitalization, Disabling)
  Sender: FDA-Public Use
  Company Number: US-MERCK-0502USA02540

PATIENT
  Age: 36 Year
  Sex: Female

DRUGS (2)
  1. AMARYL [Concomitant]
     Route: 048
  2. VIOXX [Suspect]
     Indication: KNEE OPERATION
     Route: 048
     Dates: start: 20000101

REACTIONS (2)
  - CEREBROVASCULAR ACCIDENT [None]
  - INJURY [None]
